FAERS Safety Report 13887880 (Version 6)
Quarter: 2018Q3

REPORT INFORMATION
  Report Type: Report from Study
  Country: JP (occurrence: JP)
  Receive Date: 20170821
  Receipt Date: 20180925
  Transmission Date: 20181010
  Serious: Yes (Hospitalization, Other)
  Sender: FDA-Public Use
  Company Number: JP-INCYTE CORPORATION-2017IN006885

PATIENT

DRUGS (14)
  1. AGRYLIN [Concomitant]
     Active Substance: ANAGRELIDE HYDROCHLORIDE
     Indication: POLYCYTHAEMIA VERA
     Dosage: 1.5 MG, UNK
     Route: 048
     Dates: start: 20150818, end: 20160626
  2. RED BLOOD CELLS [Concomitant]
     Active Substance: HUMAN RED BLOOD CELL
     Indication: POLYCYTHAEMIA VERA
     Dosage: 2 IU, UNK
     Route: 065
  3. JAKAVI [Suspect]
     Active Substance: RUXOLITINIB
     Dosage: 12.5 MG, BID
     Route: 048
     Dates: start: 20171027, end: 20171116
  4. JAKAVI [Suspect]
     Active Substance: RUXOLITINIB
     Indication: POLYCYTHAEMIA VERA
     Dosage: 5 MG, QD
     Route: 048
     Dates: start: 20160616, end: 20160622
  5. BAYASPIRIN [Suspect]
     Active Substance: ASPIRIN
     Indication: POLYCYTHAEMIA VERA
     Dosage: 100 MG, UNK
     Route: 048
     Dates: end: 20160801
  6. BAYASPIRIN [Suspect]
     Active Substance: ASPIRIN
     Dosage: 100 MG, UNK
     Route: 048
     Dates: start: 20160914
  7. HYDREA [Concomitant]
     Active Substance: HYDROXYUREA
     Indication: POLYCYTHAEMIA VERA
     Dosage: (500?1000 MG, DAILY) QD
     Route: 048
     Dates: end: 201611
  8. JAKAVI [Suspect]
     Active Substance: RUXOLITINIB
     Dosage: 7.5 MG, BID
     Route: 048
     Dates: start: 20180413
  9. JAKAVI [Suspect]
     Active Substance: RUXOLITINIB
     Dosage: 5 MG, BID
     Route: 048
     Dates: start: 20160812, end: 20160907
  10. JAKAVI [Suspect]
     Active Substance: RUXOLITINIB
     Dosage: 5 MG, BID
     Route: 048
     Dates: start: 20171117, end: 20180412
  11. RED BLOOD CELLS [Concomitant]
     Active Substance: HUMAN RED BLOOD CELL
     Dosage: 2 IU, UNK
     Route: 065
  12. JAKAVI [Suspect]
     Active Substance: RUXOLITINIB
     Dosage: 5 MG, BID
     Route: 048
     Dates: start: 20160623, end: 20160704
  13. JAKAVI [Suspect]
     Active Substance: RUXOLITINIB
     Dosage: 5 MG, 10 MG QOD
     Route: 048
     Dates: start: 20160705, end: 20160811
  14. JAKAVI [Suspect]
     Active Substance: RUXOLITINIB
     Dosage: 7.5 MG, BID
     Route: 048
     Dates: start: 20160908, end: 20171026

REACTIONS (14)
  - Flank pain [Unknown]
  - Haemoglobin decreased [Unknown]
  - Pyrexia [Recovered/Resolved]
  - Haemorrhagic diathesis [Recovering/Resolving]
  - Eating disorder [Unknown]
  - Nausea [Unknown]
  - Staphylococcal bacteraemia [Recovered/Resolved]
  - Splenic infarction [Recovering/Resolving]
  - Diarrhoea [Recovered/Resolved]
  - Gastroenteritis [Recovered/Resolved]
  - Hepatic enzyme increased [Recovered/Resolved]
  - Hypertension [Unknown]
  - Splenomegaly [Unknown]
  - Hepatic function abnormal [Recovered/Resolved]

NARRATIVE: CASE EVENT DATE: 20160705
